FAERS Safety Report 11709005 (Version 1)
Quarter: 2015Q4

REPORT INFORMATION
  Report Type: Spontaneous
  Country: US (occurrence: US)
  Receive Date: 20151104
  Receipt Date: 20151104
  Transmission Date: 20160304
  Serious: No
  Sender: FDA-Public Use
  Company Number: US-ELI_LILLY_AND_COMPANY-US201109000101

PATIENT
  Age: 51 Year
  Sex: Female

DRUGS (3)
  1. FORTEO [Suspect]
     Active Substance: TERIPARATIDE
     Dosage: 20 UG, QD
     Dates: start: 201108
  2. FORTEO [Suspect]
     Active Substance: TERIPARATIDE
     Indication: OSTEOPOROSIS
     Dosage: 20 UG, QD
     Dates: start: 20110808, end: 20110811
  3. CALCIUM [Concomitant]
     Active Substance: CALCIUM

REACTIONS (12)
  - Abdominal discomfort [Recovered/Resolved]
  - Abdominal discomfort [Unknown]
  - Heart rate increased [Unknown]
  - Dyspepsia [Recovered/Resolved]
  - Sleep disorder due to a general medical condition [Unknown]
  - Heart rate increased [Recovered/Resolved]
  - Sleep disorder due to a general medical condition [Recovered/Resolved]
  - Hangover [Recovered/Resolved]
  - Nausea [Recovered/Resolved]
  - Hangover [Unknown]
  - Dyspepsia [Unknown]
  - Nausea [Unknown]

NARRATIVE: CASE EVENT DATE: 201108
